FAERS Safety Report 18594050 (Version 1)
Quarter: 2020Q4

REPORT INFORMATION
  Report Type: Spontaneous
  Country: JP (occurrence: JP)
  Receive Date: 20201209
  Receipt Date: 20201209
  Transmission Date: 20210114
  Serious: Yes (Other)
  Sender: FDA-Public Use
  Company Number: NVSJ2020JP013266

PATIENT
  Age: 83 Year
  Sex: Female

DRUGS (2)
  1. TASIGNA [Suspect]
     Active Substance: NILOTINIB
     Indication: CHRONIC MYELOID LEUKAEMIA
     Dosage: 800 MG
     Route: 048
     Dates: start: 200907, end: 201003
  2. TASIGNA [Suspect]
     Active Substance: NILOTINIB
     Dosage: 300 MG
     Route: 048
     Dates: start: 201410

REACTIONS (5)
  - Full blood count decreased [Unknown]
  - Oedema [Unknown]
  - Electrocardiogram QT prolonged [Unknown]
  - Malaise [Unknown]
  - Pleural effusion [Unknown]

NARRATIVE: CASE EVENT DATE: 200907
